FAERS Safety Report 5451274-X (Version None)
Quarter: 2007Q3

REPORT INFORMATION
  Report Type: 
  Country: None (occurrence: None)
  Receive Date: 20070911
  Receipt Date: 20070911
  Transmission Date: 20080115
  Serious: Yes (Life-Threatening)
  Sender: FDA-Public Use
  Company Number: None

PATIENT
  Age: 72 Year
  Sex: Female
  Weight: 78.5 kg

DRUGS (2)
  1. HYDROXYCHLOROQUINE 200MG UNKNOWN [Suspect]
     Indication: RHEUMATOID ARTHRITIS
     Dosage: 200MG DAILY PO
     Route: 048
  2. ARAVA [Suspect]
     Indication: RHEUMATOID ARTHRITIS
     Dosage: PO
     Route: 048

REACTIONS (17)
  - ANOREXIA [None]
  - ASTHENIA [None]
  - DYSPNOEA EXERTIONAL [None]
  - EXCESSIVE GRANULATION TISSUE [None]
  - FUNGAL SKIN INFECTION [None]
  - HYPOTENSION [None]
  - LABORATORY TEST ABNORMAL [None]
  - PANCYTOPENIA [None]
  - PETECHIAE [None]
  - PHARYNGITIS [None]
  - PROTEUS INFECTION [None]
  - RENAL FAILURE ACUTE [None]
  - SINUS TACHYCARDIA [None]
  - SKIN NECROSIS [None]
  - STAPHYLOCOCCAL BACTERAEMIA [None]
  - TROPONIN INCREASED [None]
  - URINARY TRACT INFECTION [None]
